FAERS Safety Report 5331793-7 (Version None)
Quarter: 2007Q2

REPORT INFORMATION
  Report Type: 
  Country: None (occurrence: None)
  Receive Date: 20070517
  Receipt Date: 20070502
  Transmission Date: 20071010
  Serious: Yes (Life-Threatening, Hospitalization)
  Sender: FDA-Public Use
  Company Number: 2007S1003293

PATIENT
  Age: 61 Year
  Sex: Female
  Weight: 65.7716 kg

DRUGS (4)
  1. VERAPAMIL [Suspect]
     Indication: HYPERTENSION
     Dosage: 180 MG; TWICE A DAY; ORAL
     Route: 048
     Dates: start: 20070101, end: 20070101
  2. TYLENOL [Concomitant]
  3. ALBUTEROL [Concomitant]
  4. FLOVENT [Concomitant]

REACTIONS (2)
  - DRUG HYPERSENSITIVITY [None]
  - REACTION TO COLOURING [None]
